FAERS Safety Report 21753613 (Version 1)
Quarter: 2022Q4

REPORT INFORMATION
  Report Type: Spontaneous
  Country: US (occurrence: None)
  Receive Date: 20221219
  Receipt Date: 20221219
  Transmission Date: 20230113
  Serious: Yes (Hospitalization, Disabling)
  Sender: FDA-Public Use
  Company Number: None

PATIENT
  Age: 51 Year
  Sex: Female
  Weight: 95.85 kg

DRUGS (11)
  1. PAXLOVID [Suspect]
     Active Substance: NIRMATRELVIR\RITONAVIR
     Indication: COVID-19
     Dosage: OTHER QUANTITY : 3 TABLET(S);?FREQUENCY : TWICE A DAY;?
     Route: 048
  2. LISINOPRIL AND HYDROCHLOROTHIAZIDE [Concomitant]
     Active Substance: HYDROCHLOROTHIAZIDE\LISINOPRIL
  3. ROSUVASTATIN [Concomitant]
     Active Substance: ROSUVASTATIN
  4. LEVOTHYROXINE [Concomitant]
     Active Substance: LEVOTHYROXINE
  5. VITAMINS [Concomitant]
     Active Substance: VITAMINS
  6. VITAMIN D [Concomitant]
     Active Substance: VITAMIN D NOS
  7. CALCIUM [Concomitant]
     Active Substance: CALCIUM
  8. FISH OIL [Concomitant]
     Active Substance: FISH OIL
  9. STOOL SOFTENER (DOCUSATE) [Concomitant]
     Active Substance: DOCUSATE
  10. VITAMIN C [Concomitant]
     Active Substance: ASCORBIC ACID
  11. PROBIOTICS NOS [Concomitant]
     Active Substance: PROBIOTICS NOS

REACTIONS (17)
  - Abdominal pain upper [None]
  - Vomiting [None]
  - Presyncope [None]
  - Dizziness [None]
  - Asthenia [None]
  - Hypokalaemia [None]
  - Urinary tract infection [None]
  - Uterine leiomyoma [None]
  - Hypertension [None]
  - Blood glucose increased [None]
  - Stomatitis [None]
  - Oropharyngeal pain [None]
  - Flatulence [None]
  - Dysphagia [None]
  - Psychomotor hyperactivity [None]
  - White blood cell count increased [None]
  - Eye disorder [None]

NARRATIVE: CASE EVENT DATE: 20221121
